FAERS Safety Report 8539745-0 (Version None)
Quarter: 2012Q3

REPORT INFORMATION
  Report Type: 
  Country: None (occurrence: None)
  Receive Date: 20120726
  Receipt Date: 20111129
  Transmission Date: 20120928
  Serious: No
  Sender: FDA-Public Use
  Company Number: US-ASTRAZENECA-2010SE17011

PATIENT
  Sex: Female

DRUGS (8)
  1. SEROQUEL [Suspect]
     Indication: SLEEP DISORDER
     Route: 048
     Dates: start: 20090701, end: 20100413
  2. SEROQUEL [Suspect]
     Indication: BIPOLAR DISORDER
     Route: 048
     Dates: start: 20090701, end: 20100413
  3. SEROQUEL [Suspect]
     Route: 048
  4. SEROQUEL [Suspect]
     Indication: AFFECTIVE DISORDER
     Route: 048
     Dates: start: 20090701, end: 20100413
  5. SEROQUEL [Suspect]
     Route: 048
  6. PRSTIQUE [Concomitant]
     Indication: DEPRESSION
  7. LAMICTAL [Concomitant]
     Indication: AFFECTIVE DISORDER
  8. SEROQUEL [Suspect]
     Route: 048

REACTIONS (4)
  - PANIC ATTACK [None]
  - ANXIETY [None]
  - DRUG DOSE OMISSION [None]
  - NASAL CONGESTION [None]
